FAERS Safety Report 26094707 (Version 2)
Quarter: 2025Q4

REPORT INFORMATION
  Report Type: Spontaneous
  Country: US (occurrence: US)
  Receive Date: 20251126
  Receipt Date: 20251210
  Transmission Date: 20260118
  Serious: Yes (Hospitalization)
  Sender: TEVA
  Company Number: US-TEVA-VS-3394774

PATIENT
  Age: 63 Year
  Sex: Male
  Weight: 62 kg

DRUGS (3)
  1. LIDOCAINE [Suspect]
     Active Substance: LIDOCAINE
     Indication: Analgesic therapy
     Dosage: BY THORACOSTOMY TUBE, INADVERTENTLY DOSED AT 3 ML/KG INSTEAD OF THE INTENDED USUAL DOSE OF 3 MG/K...
     Route: 034
  2. OXYCODONE [Concomitant]
     Active Substance: OXYCODONE
     Indication: Analgesic intervention supportive therapy
     Dosage: ADMINISTERED SEVENTY FIVE MINUTES BEFORE TALC PLEURODESIS; ORAL EXTENDED-RELEASE
     Route: 048
  3. MORPHINE [Concomitant]
     Active Substance: MORPHINE
     Indication: Analgesic intervention supportive therapy
     Dosage: ADMINISTERED FORTY FIVE MINUTES BEFORE TALC PLEURODESIS
     Route: 042

REACTIONS (6)
  - Local anaesthetic systemic toxicity [Recovering/Resolving]
  - Depressed level of consciousness [Recovering/Resolving]
  - Incorrect dose administered [Unknown]
  - Encephalopathy [Recovering/Resolving]
  - Unresponsive to stimuli [Recovering/Resolving]
  - Accidental overdose [Unknown]
